FAERS Safety Report 18691321 (Version 1)
Quarter: 2021Q1

REPORT INFORMATION
  Report Type: Report from Study
  Country: FR (occurrence: FR)
  Receive Date: 20210101
  Receipt Date: 20210101
  Transmission Date: 20210419
  Serious: Yes (Life-Threatening, Other)
  Sender: FDA-Public Use
  Company Number: FR-TAKEDA-2020TUS059543

PATIENT
  Age: 71 Year
  Sex: Female

DRUGS (4)
  1. CINRYZE [Suspect]
     Active Substance: HUMAN C1-ESTERASE INHIBITOR
     Indication: HEREDITARY ANGIOEDEMA
     Dosage: UNK UNK, 2/WEEK
     Route: 042
     Dates: start: 2015, end: 2019
  2. CINRYZE [Suspect]
     Active Substance: HUMAN C1-ESTERASE INHIBITOR
     Indication: HEREDITARY ANGIOEDEMA
     Dosage: UNK UNK, 2/WEEK
     Route: 042
     Dates: start: 2015, end: 2019
  3. 643 (LANADELUMAB) [Suspect]
     Active Substance: LANADELUMAB
     Indication: HEREDITARY ANGIOEDEMA
     Dosage: 300 MILLIGRAM, Q3WEEKS
     Route: 058
     Dates: start: 2019
  4. CINRYZE [Suspect]
     Active Substance: HUMAN C1-ESTERASE INHIBITOR
     Indication: HEREDITARY ANGIOEDEMA
     Dosage: UNK UNK, 2/WEEK
     Route: 042
     Dates: start: 2015, end: 2019

REACTIONS (6)
  - Venous injury [Unknown]
  - Drug ineffective [Unknown]
  - Laryngeal oedema [Unknown]
  - Off label use [Unknown]
  - Myalgia [Unknown]
  - Dizziness [Unknown]
